FAERS Safety Report 7646604-4 (Version None)
Quarter: 2011Q3

REPORT INFORMATION
  Report Type: 
  Country: None (occurrence: None)
  Receive Date: 20110711
  Receipt Date: 20110314
  Transmission Date: 20111222
  Serious: Yes (Other)
  Sender: FDA-Public Use
  Company Number: IPC201103-000279

PATIENT

DRUGS (2)
  1. REGLAN [Suspect]
     Dates: start: 20040101, end: 20100401
  2. METOCLOPRAMIDE HYDROCHLORIDE [Suspect]
     Dates: start: 20040101, end: 20100401

REACTIONS (1)
  - TARDIVE DYSKINESIA [None]
